FAERS Safety Report 23558645 (Version 1)
Quarter: 2024Q1

REPORT INFORMATION
  Report Type: Spontaneous
  Country: US (occurrence: None)
  Receive Date: 20240222
  Receipt Date: 20240222
  Transmission Date: 20240409
  Serious: Yes (Death)
  Sender: FDA-Public Use
  Company Number: None

PATIENT
  Age: 21 Year
  Sex: Female
  Weight: 77.3 kg

DRUGS (5)
  1. OLANZAPINE [Suspect]
     Active Substance: OLANZAPINE
     Indication: Aggression
     Dosage: FREQUENCY : ONCE;?
     Route: 030
     Dates: start: 20240221
  2. LORAZEPAM [Suspect]
     Active Substance: LORAZEPAM
     Dosage: FREQUENCY : ONCE;?
     Route: 030
     Dates: start: 20240221
  3. ARIPIPRAZOLE [Concomitant]
     Active Substance: ARIPIPRAZOLE
  4. ESCITALOPRAM [Concomitant]
     Active Substance: ESCITALOPRAM OXALATE
  5. ZULANE PATCH [Concomitant]

REACTIONS (4)
  - Altered state of consciousness [None]
  - Confusional state [None]
  - Mydriasis [None]
  - Cardio-respiratory arrest [None]

NARRATIVE: CASE EVENT DATE: 20240221
